FAERS Safety Report 8921762 (Version 1)
Quarter: 2012Q4

REPORT INFORMATION
  Report Type: 
  Country: US (occurrence: US)
  Receive Date: 20121121
  Receipt Date: 20121121
  Transmission Date: 20130627
  Serious: No
  Sender: FDA-Public Use
  Company Number: US-ASTRAZENECA-2012SE85103

PATIENT
  Age: 93 Year
  Sex: Female

DRUGS (2)
  1. ENABLEX [Concomitant]
     Indication: BLADDER DISORDER
     Dosage: DAILY
     Route: 048
  2. VIMOVO [Suspect]
     Indication: OSTEOARTHRITIS
     Dosage: 375 MG/20 MG
     Route: 048
     Dates: start: 20121104, end: 20121104

REACTIONS (3)
  - Scratch [Recovered/Resolved]
  - Hypersensitivity [Recovered/Resolved]
  - Pruritus [Recovered/Resolved]
